FAERS Safety Report 5237360-8 (Version None)
Quarter: 2007Q1

REPORT INFORMATION
  Report Type: 
  Country: None (occurrence: None)
  Receive Date: 20070213
  Receipt Date: 20070206
  Transmission Date: 20070707
  Serious: Yes (Death)
  Sender: FDA-Public Use
  Company Number: HQWYE490212FEB07

PATIENT

DRUGS (2)
  1. SIROLIMUS [Suspect]
     Indication: PROPHYLAXIS AGAINST TRANSPLANT REJECTION
     Dosage: 6 MG LOADING DOSE
     Route: 065
  2. SIROLIMUS [Suspect]
     Route: 065

REACTIONS (1)
  - MULTI-ORGAN FAILURE [None]
